FAERS Safety Report 4948428-5 (Version None)
Quarter: 2006Q1

REPORT INFORMATION
  Report Type: 
  Country: None (occurrence: None)
  Receive Date: 20060320
  Receipt Date: 20051122
  Transmission Date: 20060701
  Serious: No
  Sender: FDA-Public Use
  Company Number: DE-ABBOTT-05P-062-0317922-00

PATIENT
  Sex: Male

DRUGS (2)
  1. ERGENYL CHRONO TABLETS [Suspect]
     Indication: PROPHYLAXIS
     Route: 048
     Dates: start: 19990319
  2. AMITRIPTYLINE HCL [Concomitant]
     Indication: DEPRESSION
     Route: 048
     Dates: start: 20050127

REACTIONS (2)
  - CONSTIPATION [None]
  - MEDICATION RESIDUE [None]
